FAERS Safety Report 9932448 (Version 1)
Quarter: 2014Q1

REPORT INFORMATION
  Report Type: Spontaneous
  Country: US (occurrence: None)
  Receive Date: 20140227
  Receipt Date: 20140227
  Transmission Date: 20141002
  Serious: Yes (Hospitalization)
  Sender: FDA-Public Use
  Company Number: None

PATIENT
  Age: 54 Year
  Sex: Female

DRUGS (2)
  1. INTELENCE [Suspect]
     Route: 048
     Dates: start: 20130215
  2. ABACAVIR [Suspect]
     Route: 048
     Dates: start: 20130215

REACTIONS (1)
  - Influenza [None]
